FAERS Safety Report 12419098 (Version 1)
Quarter: 2016Q2

REPORT INFORMATION
  Report Type: Spontaneous
  Country: US (occurrence: None)
  Receive Date: 20160527
  Receipt Date: 20160527
  Transmission Date: 20160815
  Serious: Yes (Life-Threatening, Hospitalization, Disabling, Other)
  Sender: FDA-Public Use
  Company Number: None

PATIENT
  Age: 53 Year
  Sex: Male
  Weight: 77.11 kg

DRUGS (5)
  1. EPA [Concomitant]
  2. CIPROFLOXACIN, 500 MG DR. REDDY^S [Suspect]
     Active Substance: CIPROFLOXACIN
     Indication: URINARY TRACT INFECTION
     Dosage: 18 TABLETS ONCE A DAY
     Route: 048
     Dates: start: 20160310, end: 20160327
  3. TYLENOL [Concomitant]
     Active Substance: ACETAMINOPHEN
  4. MAGNESIUM [Concomitant]
     Active Substance: MAGNESIUM
  5. BENADRYL [Concomitant]
     Active Substance: DIPHENHYDRAMINE HYDROCHLORIDE

REACTIONS (15)
  - Night sweats [None]
  - Vomiting [None]
  - Hypertension [None]
  - Nausea [None]
  - Gait disturbance [None]
  - Blood alkaline phosphatase increased [None]
  - Myalgia [None]
  - Arthralgia [None]
  - Vision blurred [None]
  - Blood albumin decreased [None]
  - Pain in extremity [None]
  - Headache [None]
  - Decreased appetite [None]
  - Weight decreased [None]
  - Sepsis [None]

NARRATIVE: CASE EVENT DATE: 20160327
